FAERS Safety Report 7718872-1 (Version None)
Quarter: 2011Q3

REPORT INFORMATION
  Report Type: 
  Country: None (occurrence: None)
  Receive Date: 20110824
  Receipt Date: 20110818
  Transmission Date: 20111222
  Serious: Yes (Hospitalization)
  Sender: FDA-Public Use
  Company Number: WAES 1108DEU00079

PATIENT
  Age: 78 Year
  Sex: Female

DRUGS (11)
  1. CLOPIDOGREL BISULFATE [Concomitant]
  2. CLEMASTINE FUMARATE [Concomitant]
  3. ZOLPIDEM TARTRATE [Concomitant]
  4. TAB BLINDED THERAPY [Suspect]
     Dosage: PO
     Route: 048
     Dates: start: 20110625
  5. TAB BLINDED THERAPY [Suspect]
     Dosage: PO
     Route: 048
     Dates: start: 20110616, end: 20110716
  6. LERCANIDIPINE [Concomitant]
  7. EZETIMIBE/SIMVASTATIN [Suspect]
     Indication: HYPERCHOLESTEROLAEMIA
     Dosage: 10-40 MG, DAILY, PO
     Route: 048
     Dates: end: 20110716
  8. EZETIMIBE/SIMVASTATIN [Suspect]
     Indication: HYPERCHOLESTEROLAEMIA
     Dosage: 10-40 MG, DAILY, PO
     Route: 048
     Dates: start: 20110721
  9. ALISKIREN [Concomitant]
  10. ASPIRIN [Concomitant]
  11. BISOPROLOL FUMARATE [Concomitant]

REACTIONS (3)
  - LEUKOPENIA [None]
  - PYREXIA [None]
  - DYSARTHRIA [None]
